FAERS Safety Report 6390024-X (Version None)
Quarter: 2009Q4

REPORT INFORMATION
  Report Type: 
  Country: None (occurrence: None)
  Receive Date: 20091006
  Receipt Date: 20090928
  Transmission Date: 20100525
  Serious: Yes (Hospitalization, Other)
  Sender: FDA-Public Use
  Company Number: BR-ABBOTT-09P-020-0599756-00

PATIENT
  Sex: Female
  Weight: 56 kg

DRUGS (2)
  1. HUMIRA [Suspect]
     Indication: CROHN'S DISEASE
     Dosage: INDUCTION DOSE: 160MG - 80MG - 14 DAYS.
     Route: 058
     Dates: start: 20080401, end: 20081101
  2. MESALAZINE [Concomitant]
     Indication: CROHN'S DISEASE
     Route: 048
     Dates: start: 20030101, end: 20090701

REACTIONS (2)
  - DRUG INEFFECTIVE [None]
  - FISTULA [None]
